FAERS Safety Report 22303577 (Version 2)
Quarter: 2023Q2

REPORT INFORMATION
  Report Type: Spontaneous
  Country: US (occurrence: US)
  Receive Date: 20230510
  Receipt Date: 20230515
  Transmission Date: 20230721
  Serious: Yes (Hospitalization, Other)
  Sender: FDA-Public Use
  Company Number: US-PFIZER INC-PV202300079859

PATIENT
  Age: 58 Year
  Sex: Female

DRUGS (1)
  1. LEVOTHYROXINE SODIUM [Suspect]
     Active Substance: LEVOTHYROXINE SODIUM
     Indication: Post procedural hypothyroidism
     Dosage: UNK

REACTIONS (6)
  - Atrial fibrillation [Unknown]
  - Hyperthyroidism [Unknown]
  - Disease recurrence [Unknown]
  - Graves^ disease [Unknown]
  - Treatment noncompliance [Unknown]
  - Incorrect dose administered [Unknown]
